FAERS Safety Report 12292265 (Version 6)
Quarter: 2019Q2

REPORT INFORMATION
  Report Type: Spontaneous
  Country: FR (occurrence: FR)
  Receive Date: 20160421
  Receipt Date: 20190625
  Transmission Date: 20190711
  Serious: Yes (Disabling, Congenital Anomaly, Other)
  Sender: FDA-Public Use
  Company Number: FR-ABBVIE-16P-056-1610051-00

PATIENT
  Sex: Male

DRUGS (5)
  1. DEPAKINE [Suspect]
     Active Substance: VALPROATE SODIUM
     Indication: MATERNAL EXPOSURE TIMING UNSPECIFIED
     Route: 064
  2. DEPAKINE [Suspect]
     Active Substance: VALPROATE SODIUM
     Route: 064
  3. EPITOMAX [Suspect]
     Active Substance: TOPIRAMATE
     Indication: EPILEPSY
     Route: 065
     Dates: end: 200401
  4. DEPAKINE [Suspect]
     Active Substance: VALPROATE SODIUM
     Indication: EPILEPSY
     Route: 065
     Dates: end: 200401
  5. GARDENAL [Concomitant]
     Active Substance: PHENOBARBITAL
     Indication: PRODUCT USED FOR UNKNOWN INDICATION

REACTIONS (47)
  - Plagiocephaly [Recovered/Resolved]
  - Seizure [Unknown]
  - Knee deformity [Unknown]
  - Cognitive disorder [Unknown]
  - Foetal exposure during pregnancy [Unknown]
  - Monolid eyes [Unknown]
  - Prognathism [Unknown]
  - Incontinence [Unknown]
  - Deafness [Unknown]
  - Epilepsy [Not Recovered/Not Resolved]
  - Strabismus [Unknown]
  - Clinodactyly [Unknown]
  - Marfan^s syndrome [Unknown]
  - Eyelid disorder [Unknown]
  - Mental disorder [Not Recovered/Not Resolved]
  - Speech disorder [Unknown]
  - Hypocalcaemia [Unknown]
  - Intellectual disability [Unknown]
  - Kyphosis [Unknown]
  - Hypotonia [Recovered/Resolved]
  - Anal incontinence [Unknown]
  - Developmental delay [Unknown]
  - Reading disorder [Unknown]
  - Dysgraphia [Unknown]
  - Foetal anticonvulsant syndrome [Unknown]
  - Infection [Unknown]
  - Loss of personal independence in daily activities [Unknown]
  - Anger [Unknown]
  - Anxiety [Unknown]
  - Arachnodactyly [Unknown]
  - Disorientation [Unknown]
  - Dependence [Unknown]
  - Cleft lip and palate [Unknown]
  - Disability [Unknown]
  - Brachydactyly [Unknown]
  - Psychomotor retardation [Unknown]
  - Talipes [Unknown]
  - Enuresis [Unknown]
  - Encopresis [Unknown]
  - Agitation [Unknown]
  - Muscular weakness [Unknown]
  - Seizure [Unknown]
  - Poor personal hygiene [Unknown]
  - Nasopharyngitis [Unknown]
  - Ear malformation [Unknown]
  - Foot deformity [Unknown]
  - Eyelid ptosis [Unknown]

NARRATIVE: CASE EVENT DATE: 1994
